FAERS Safety Report 23136197 (Version 4)
Quarter: 2024Q1

REPORT INFORMATION
  Report Type: Spontaneous
  Country: JP (occurrence: JP)
  Receive Date: 20231102
  Receipt Date: 20240119
  Transmission Date: 20240410
  Serious: Yes (Other)
  Sender: FDA-Public Use
  Company Number: JP-ASTELLAS-2023JP012007

PATIENT
  Age: 80 Year
  Sex: Female

DRUGS (5)
  1. ZOLPIDEM TARTRATE [Suspect]
     Active Substance: ZOLPIDEM TARTRATE
     Indication: Product used for unknown indication
     Dosage: UNK
     Route: 048
  2. ZOLPIDEM TARTRATE [Suspect]
     Active Substance: ZOLPIDEM TARTRATE
     Dosage: REDUCED BY 1/4 TABLET, AS NEEDED
     Route: 048
  3. TRIAZOLAM [Suspect]
     Active Substance: TRIAZOLAM
     Indication: Product used for unknown indication
     Dosage: UNK UNK, UNKNOWN FREQ.
     Route: 048
  4. TRIAZOLAM [Suspect]
     Active Substance: TRIAZOLAM
     Dosage: REDUCED BY 1/4 TABLET, AS NEEDED
     Route: 048
  5. MAGNESIUM OXIDE [Concomitant]
     Active Substance: MAGNESIUM OXIDE
     Indication: Product used for unknown indication
     Dosage: UNK UNK, UNKNOWN FREQ.
     Route: 048

REACTIONS (5)
  - Dementia with Lewy bodies [Recovering/Resolving]
  - Hallucination, visual [Recovering/Resolving]
  - Gait disturbance [Recovering/Resolving]
  - Reduced facial expression [Recovering/Resolving]
  - Decreased appetite [Recovering/Resolving]
